FAERS Safety Report 13076500 (Version 1)
Quarter: 2016Q4

REPORT INFORMATION
  Report Type: Spontaneous
  Country: BR (occurrence: BR)
  Receive Date: 20161230
  Receipt Date: 20161230
  Transmission Date: 20170207
  Serious: Yes (Other)
  Sender: FDA-Public Use
  Company Number: BR-JNJFOC-20161222989

PATIENT
  Sex: Female
  Weight: 52 kg

DRUGS (3)
  1. RIBAVARIN [Suspect]
     Active Substance: RIBAVIRIN
     Indication: HEPATITIS C
     Dosage: 500 MG MORNING AND EVENING
     Route: 065
     Dates: start: 20160402, end: 20160630
  2. SOFOSBUVIR [Suspect]
     Active Substance: SOFOSBUVIR
     Indication: HEPATITIS C
     Route: 065
     Dates: start: 20160402, end: 20160630
  3. OLYSIO [Suspect]
     Active Substance: SIMEPREVIR
     Indication: HEPATITIS C
     Route: 065
     Dates: start: 20160402, end: 20160630

REACTIONS (2)
  - Hyperkeratosis [Unknown]
  - Alopecia [Unknown]
